FAERS Safety Report 10043254 (Version 1)
Quarter: 2014Q1

REPORT INFORMATION
  Report Type: Spontaneous
  Country: IT (occurrence: IT)
  Receive Date: 20140328
  Receipt Date: 20140328
  Transmission Date: 20141002
  Serious: Yes (Other)
  Sender: FDA-Public Use
  Company Number: IT-ROCHE-1373126

PATIENT
  Age: 45 Year
  Sex: Female

DRUGS (2)
  1. VEMURAFENIB [Suspect]
     Indication: MALIGNANT MELANOMA
     Route: 065
     Dates: end: 20130811
  2. VEMURAFENIB [Suspect]
     Route: 065
     Dates: start: 20130906

REACTIONS (1)
  - Hyperpyrexia [Unknown]
